FAERS Safety Report 13402402 (Version 1)
Quarter: 2017Q2

REPORT INFORMATION
  Report Type: Not Available
  Country: None (occurrence: US)
  Receive Date: 20170404
  Receipt Date: 20170404
  Transmission Date: 20170830
  Serious: No
  Sender: FDA-Public Use
  Company Number: US-AKORN-51693

PATIENT
  Sex: Female

DRUGS (1)
  1. KETOROLAC TROMETHAMINE 0.5 % OPHTHALMIC SOLUTION [Suspect]
     Active Substance: KETOROLAC TROMETHAMINE

REACTIONS (3)
  - Vision blurred [None]
  - Eye pain [None]
  - Corneal abrasion [Unknown]
